FAERS Safety Report 25449654 (Version 1)
Quarter: 2025Q2

REPORT INFORMATION
  Report Type: Spontaneous
  Country: GB (occurrence: GB)
  Receive Date: 20250618
  Receipt Date: 20250618
  Transmission Date: 20250717
  Serious: Yes (Life-Threatening, Hospitalization, Other)
  Sender: ALKEM
  Company Number: None

PATIENT
  Sex: Male

DRUGS (15)
  1. ESOMEPRAZOLE MAGNESIUM [Suspect]
     Active Substance: ESOMEPRAZOLE MAGNESIUM
     Indication: Gastrointestinal disorder
     Dosage: 20 MILLIGRAM, OD
     Route: 048
  2. SILDENAFIL [Suspect]
     Active Substance: SILDENAFIL
     Indication: Erectile dysfunction
     Route: 048
  3. SILDENAFIL [Suspect]
     Active Substance: SILDENAFIL
     Route: 065
  4. TACROLIMUS [Suspect]
     Active Substance: TACROLIMUS
     Indication: Psoriasis
     Route: 065
  5. CITALOPRAM [Suspect]
     Active Substance: CITALOPRAM
     Indication: Anxiety
     Dosage: 20 MILLIGRAM, OD (FILM-COATED TABLET)
     Route: 048
  6. SECUKINUMAB [Suspect]
     Active Substance: SECUKINUMAB
     Indication: Psoriasis
     Route: 058
     Dates: start: 202006
  7. TRIMOVATE [Suspect]
     Active Substance: CLOBETASONE BUTYRATE\NYSTATIN\OXYTETRACYCLINE CALCIUM
     Indication: Candida infection
     Dosage: UNK, OD
     Route: 065
  8. TRIMOVATE [Suspect]
     Active Substance: CLOBETASONE BUTYRATE\NYSTATIN\OXYTETRACYCLINE CALCIUM
     Indication: Psoriasis
     Dosage: UNK, QD (7/7 ED, CREAM),
     Route: 065
  9. TRIMOVATE [Suspect]
     Active Substance: CLOBETASONE BUTYRATE\NYSTATIN\OXYTETRACYCLINE CALCIUM
     Indication: Candida infection
  10. AMITRIPTYLINE [Concomitant]
     Active Substance: AMITRIPTYLINE
     Indication: Product used for unknown indication
     Route: 065
  11. COCODAMOL [Concomitant]
     Active Substance: ACETAMINOPHEN\CODEINE PHOSPHATE
     Indication: Product used for unknown indication
     Route: 065
  12. MORPHINE [Concomitant]
     Active Substance: MORPHINE
     Indication: Product used for unknown indication
     Route: 065
  13. OMEPRAZOLE [Concomitant]
     Active Substance: OMEPRAZOLE
     Indication: Product used for unknown indication
     Route: 065
  14. PREDNISOLONE [Concomitant]
     Active Substance: PREDNISOLONE
     Indication: Product used for unknown indication
     Route: 065
  15. MORPHINE SULFATE [Concomitant]
     Active Substance: MORPHINE SULFATE
     Indication: Product used for unknown indication
     Route: 065

REACTIONS (21)
  - General physical health deterioration [Unknown]
  - Feeling abnormal [Unknown]
  - Mental disorder [Not Recovered/Not Resolved]
  - Full blood count abnormal [Unknown]
  - Cholesteatoma [Unknown]
  - Pneumonia [Recovering/Resolving]
  - Upper respiratory tract infection [Unknown]
  - Ear infection [Unknown]
  - Cellulitis [Unknown]
  - Malaise [Unknown]
  - Psoriasis [Unknown]
  - Lung disorder [Unknown]
  - Skin disorder [Unknown]
  - Bone disorder [Unknown]
  - Impaired healing [Unknown]
  - Hyperhidrosis [Unknown]
  - Dyspnoea [Unknown]
  - Confusional state [Unknown]
  - Ear, nose and throat infection [Unknown]
  - Infection [Unknown]
  - Oral candidiasis [Recovered/Resolved]
